FAERS Safety Report 15417148 (Version 3)
Quarter: 2018Q4

REPORT INFORMATION
  Report Type: Report from Study
  Country: FR (occurrence: FR)
  Receive Date: 20180924
  Receipt Date: 20181011
  Transmission Date: 20190204
  Serious: Yes (Hospitalization)
  Sender: FDA-Public Use
  Company Number: FR-GILEAD-2018-0363368

PATIENT
  Sex: Female

DRUGS (8)
  1. IDELALISIB [Suspect]
     Active Substance: IDELALISIB
     Indication: B-CELL LYMPHOMA
     Dosage: 150 MG, BID
     Route: 048
     Dates: start: 20160325, end: 20161114
  2. BACTRIM [Suspect]
     Active Substance: SULFAMETHOXAZOLE\TRIMETHOPRIM
     Indication: PROPHYLAXIS
     Dosage: UNK UNKNOWN, UNK
     Route: 048
     Dates: start: 20160412, end: 20161114
  3. MOVICOL [Concomitant]
     Active Substance: POLYETHYLENE GLYCOL 3350\POTASSIUM CHLORIDE\SODIUM BICARBONATE\SODIUM CHLORIDE
     Indication: ABDOMINAL PAIN
     Route: 048
     Dates: start: 20160907
  4. PANTOPRAZOLE [Concomitant]
     Active Substance: PANTOPRAZOLE
     Indication: PROPHYLAXIS
     Route: 048
     Dates: start: 2011
  5. MIANSERINE                         /00390601/ [Suspect]
     Active Substance: MIANSERIN
     Indication: DEPRESSION
     Dosage: UNK UNKNOWN, UNK
     Route: 048
     Dates: start: 20160907, end: 20161125
  6. CYAMEMAZINE [Concomitant]
     Active Substance: CYAMEMAZINE
     Indication: DEPRESSION
     Route: 048
     Dates: start: 2011, end: 201611
  7. VALACYCLOVIR                       /01269701/ [Concomitant]
     Active Substance: VALACYCLOVIR HYDROCHLORIDE
     Indication: PROPHYLAXIS
     Route: 048
     Dates: start: 20160412
  8. OXAZEPAM. [Concomitant]
     Active Substance: OXAZEPAM
     Indication: DEPRESSION
     Route: 048
     Dates: start: 20111202

REACTIONS (1)
  - Dermatitis exfoliative generalised [Recovered/Resolved]

NARRATIVE: CASE EVENT DATE: 201611
